FAERS Safety Report 25882558 (Version 5)
Quarter: 2025Q4

REPORT INFORMATION
  Report Type: Spontaneous
  Country: CO (occurrence: CO)
  Receive Date: 20251006
  Receipt Date: 20251125
  Transmission Date: 20260118
  Serious: Yes (Disabling, Other)
  Sender: SANOFI AVENTIS
  Company Number: CO-SA-2025SA288982

PATIENT
  Age: 74 Year
  Sex: Male
  Weight: 70 kg

DRUGS (11)
  1. LANTUS [Suspect]
     Active Substance: INSULIN GLARGINE
     Indication: Type 2 diabetes mellitus
     Dosage: 16 IU, HS
     Dates: start: 2016
  2. LANTUS [Suspect]
     Active Substance: INSULIN GLARGINE
     Dosage: 20 IU, HS
     Dates: start: 2025
  3. LOSARTAN [Concomitant]
     Active Substance: LOSARTAN
     Dosage: 1 DF, QD (1 TABLET IN THE MORNING)
  4. ATORVASTATIN [Concomitant]
     Active Substance: ATORVASTATIN
     Dosage: 1 DF, QD (1 TABLET DAILY)
  5. EMPAGLIFLOZIN [Concomitant]
     Active Substance: EMPAGLIFLOZIN
     Dosage: 1 DF, HS (1 TABLET AT NIGHT BEFORE DINNER)
  6. PREGABALIN [Concomitant]
     Active Substance: PREGABALIN
     Dosage: 1 DF, QD (1 TABLET DAILY)
  7. ATORVASTATIN [Concomitant]
     Active Substance: ATORVASTATIN
  8. ATORVASTATIN [Concomitant]
     Active Substance: ATORVASTATIN
     Dosage: QD
  9. EMPAGLIFLOZIN [Concomitant]
     Active Substance: EMPAGLIFLOZIN
  10. EMPAGLIFLOZIN [Concomitant]
     Active Substance: EMPAGLIFLOZIN
     Dosage: QD
  11. PREGABALIN [Concomitant]
     Active Substance: PREGABALIN

REACTIONS (14)
  - Renal failure [Not Recovered/Not Resolved]
  - Diabetic retinopathy [Not Recovered/Not Resolved]
  - Blindness unilateral [Not Recovered/Not Resolved]
  - Ocular discomfort [Not Recovered/Not Resolved]
  - Diabetes mellitus inadequate control [Recovered/Resolved]
  - Pain in extremity [Not Recovered/Not Resolved]
  - Muscle spasms [Not Recovered/Not Resolved]
  - Sleep disorder due to general medical condition, insomnia type [Not Recovered/Not Resolved]
  - Anxiety disorder due to a general medical condition [Not Recovered/Not Resolved]
  - Depression [Not Recovered/Not Resolved]
  - Optic disc drusen [Not Recovered/Not Resolved]
  - Visual impairment [Not Recovered/Not Resolved]
  - Night blindness [Not Recovered/Not Resolved]
  - Blood glucose increased [Recovering/Resolving]

NARRATIVE: CASE EVENT DATE: 20180101
